FAERS Safety Report 24742679 (Version 2)
Quarter: 2025Q2

REPORT INFORMATION
  Report Type: Report from Study
  Country: ES (occurrence: ES)
  Receive Date: 20241217
  Receipt Date: 20250430
  Transmission Date: 20250716
  Serious: Yes (Other)
  Sender: PFIZER
  Company Number: ES-PFIZER INC-202400324531

PATIENT
  Age: 55 Year
  Sex: Male

DRUGS (3)
  1. CEFTAROLINE FOSAMIL [Suspect]
     Active Substance: CEFTAROLINE FOSAMIL
     Indication: Staphylococcal bacteraemia
     Dosage: 1800 MG, DAILY
  2. LINEZOLID [Suspect]
     Active Substance: LINEZOLID
     Indication: Staphylococcal bacteraemia
     Dosage: 1200 MG, DAILY
  3. DAPTOMYCIN [Suspect]
     Active Substance: DAPTOMYCIN
     Indication: Staphylococcal bacteraemia
     Dosage: 800 MG, DAILY

REACTIONS (1)
  - Haematotoxicity [Unknown]
